FAERS Safety Report 10205244 (Version 1)
Quarter: 2014Q2

REPORT INFORMATION
  Report Type: Spontaneous
  Country: US (occurrence: None)
  Receive Date: 20140527
  Receipt Date: 20140527
  Transmission Date: 20141212
  Serious: Yes (Hospitalization)
  Sender: FDA-Public Use
  Company Number: None

PATIENT
  Age: 58 Year
  Sex: Male

DRUGS (13)
  1. CLOFARABINE [Suspect]
     Indication: LEUKAEMIA
     Route: 042
     Dates: start: 20111223, end: 20111227
  2. RANITIDINE [Concomitant]
  3. TEMAZEPAM [Concomitant]
  4. VENLAFAXINE [Concomitant]
  5. ACYCLOVIR [Concomitant]
  6. CEFEPIME [Concomitant]
  7. DILITIAZEM [Concomitant]
  8. FLUCONAZOLE [Concomitant]
  9. LANSOPRAZOLE [Concomitant]
  10. LEVOTHYROXINE [Concomitant]
  11. PHYTONADIONE [Concomitant]
  12. POLYETHYLENE GLYCOL 3350 [Concomitant]
  13. POTASSIUM CHLORIDE [Concomitant]

REACTIONS (10)
  - Chest pain [None]
  - Nausea [None]
  - Vomiting [None]
  - Pancytopenia [None]
  - Pyrexia [None]
  - Atrial fibrillation [None]
  - Mucosal inflammation [None]
  - Pyrexia [None]
  - Mental status changes [None]
  - Enterococcal infection [None]
